FAERS Safety Report 9475151 (Version 1)
Quarter: 2013Q3

REPORT INFORMATION
  Report Type: Spontaneous
  Country: US (occurrence: US)
  Receive Date: 20130824
  Receipt Date: 20130824
  Transmission Date: 20140515
  Serious: No
  Sender: FDA-Public Use
  Company Number: US-B.I. PHARMACEUTICALS,INC./RIDGEFIELD-2013-BI-25539BP

PATIENT
  Age: 81 Year
  Sex: Female
  Weight: 57 kg

DRUGS (3)
  1. SPIRIVA [Suspect]
     Indication: ASTHMA
     Dosage: 18 MCG
     Route: 055
     Dates: start: 201302
  2. PREDNISONE [Concomitant]
     Indication: AUTOIMMUNE HEPATITIS
     Route: 048
  3. SYMBICORT [Concomitant]
     Indication: ASTHMA
     Dosage: (FORMULATION:INHALATION AEROSOL)
     Route: 055
     Dates: start: 201211

REACTIONS (2)
  - Dysphonia [Not Recovered/Not Resolved]
  - Off label use [Not Recovered/Not Resolved]
